FAERS Safety Report 6284134-5 (Version None)
Quarter: 2009Q3

REPORT INFORMATION
  Report Type: 
  Country: None (occurrence: None)
  Receive Date: 20090727
  Receipt Date: 20090716
  Transmission Date: 20100115
  Serious: Yes (Death)
  Sender: FDA-Public Use
  Company Number: US-RANBAXY-2006RR-01709

PATIENT
  Age: 26 Year
  Sex: Male

DRUGS (5)
  1. LOPERAMIDE HYDROCHLORIDE [Suspect]
     Indication: ABDOMINAL DISCOMFORT
  2. ALCOHOL [Suspect]
  3. LITHIUM CARBONATE [Concomitant]
     Dosage: 300 MG, UNK
     Route: 065
  4. TRAZODONE [Concomitant]
     Dosage: 100 MG, UNK
     Route: 065
  5. ARIPIPRAZOLE [Concomitant]
     Dosage: 10 MG, UNK

REACTIONS (5)
  - HEPATITIS [None]
  - INFLAMMATION [None]
  - LEFT VENTRICULAR HYPERTROPHY [None]
  - OVERDOSE [None]
  - SPLEEN DISORDER [None]
